FAERS Safety Report 10312800 (Version 2)
Quarter: 2014Q3

REPORT INFORMATION
  Report Type: Spontaneous
  Country: JP (occurrence: JP)
  Receive Date: 20140718
  Receipt Date: 20140801
  Transmission Date: 20150326
  Serious: Yes (Death)
  Sender: FDA-Public Use
  Company Number: JP-TEVA-495323ISR

PATIENT
  Age: 5 Decade
  Sex: Female

DRUGS (1)
  1. FENTANYL ORAL TRANSMUCOSAL [Suspect]
     Active Substance: FENTANYL
     Indication: CANCER PAIN
     Route: 048

REACTIONS (1)
  - Death [Fatal]
